FAERS Safety Report 6263838-4 (Version None)
Quarter: 2009Q3

REPORT INFORMATION
  Report Type: 
  Country: None (occurrence: None)
  Receive Date: 20090710
  Receipt Date: 20080320
  Transmission Date: 20100115
  Serious: Yes (Hospitalization, Other)
  Sender: FDA-Public Use
  Company Number: US-ASTRAZENECA-2007UW28987

PATIENT
  Age: 16541 Day
  Sex: Male
  Weight: 120.7 kg

DRUGS (33)
  1. SEROQUEL [Suspect]
     Indication: HALLUCINATION, AUDITORY
     Dosage: 100-800 MG
     Route: 048
     Dates: start: 19960101
  2. SEROQUEL [Suspect]
     Indication: SCHIZOPHRENIA
     Dosage: 100-800 MG
     Route: 048
     Dates: start: 19960101
  3. SEROQUEL [Suspect]
     Indication: DEPRESSION
     Dosage: 100-800 MG
     Route: 048
     Dates: start: 19960101
  4. SEROQUEL [Suspect]
     Indication: PSYCHOTIC DISORDER
     Dosage: 100-800 MG
     Route: 048
     Dates: start: 19960101
  5. SEROQUEL [Suspect]
     Dosage: VARIOUS INCLUDING BUT NOT LIMITED TO 600 MG + 800 MG
     Route: 048
     Dates: start: 19970101
  6. SEROQUEL [Suspect]
     Dosage: VARIOUS INCLUDING BUT NOT LIMITED TO 600 MG + 800 MG
     Route: 048
     Dates: start: 19970101
  7. SEROQUEL [Suspect]
     Dosage: VARIOUS INCLUDING BUT NOT LIMITED TO 600 MG + 800 MG
     Route: 048
     Dates: start: 19970101
  8. SEROQUEL [Suspect]
     Dosage: VARIOUS INCLUDING BUT NOT LIMITED TO 600 MG + 800 MG
     Route: 048
     Dates: start: 19970101
  9. ABILIFY [Concomitant]
     Dates: start: 20070101
  10. NAVANE [Concomitant]
     Dates: start: 19860101
  11. THORAZINE [Concomitant]
     Dates: start: 19840101
  12. LEXAPRO [Concomitant]
     Dates: start: 20070101
  13. ATACAND [Concomitant]
     Indication: HYPERTENSION
  14. TOPROL-XL [Concomitant]
     Indication: HYPERTENSION
     Dosage: 50-100 MG
     Route: 048
  15. NEXIUM [Concomitant]
     Indication: GASTROOESOPHAGEAL REFLUX DISEASE
     Route: 048
  16. PRILOSEC [Concomitant]
     Indication: GASTROOESOPHAGEAL REFLUX DISEASE
     Route: 048
  17. NEURONTIN [Concomitant]
     Indication: NEUROPATHY PERIPHERAL
     Dosage: 200-2400 MG
  18. NEURONTIN [Concomitant]
     Indication: NEURALGIA
     Dosage: 200-2400 MG
  19. NITROGLYCERIN [Concomitant]
     Indication: CHEST PAIN
     Route: 060
  20. LORTAB [Concomitant]
     Indication: PAIN
  21. LASIX [Concomitant]
     Route: 048
  22. HYDROCHLOROTHIAZIDE [Concomitant]
  23. VISTARIL [Concomitant]
     Indication: AGITATION
     Dosage: 150-200 MG
  24. VISTARIL [Concomitant]
     Indication: ANXIETY
     Dosage: 150-200 MG
  25. RESTORIL [Concomitant]
     Indication: INSOMNIA
  26. ALBUTEROL [Concomitant]
     Route: 045
  27. ATIVAN [Concomitant]
     Indication: ANXIETY
     Route: 048
  28. ATIVAN [Concomitant]
     Indication: AGITATION
     Route: 048
  29. SINGULAIR [Concomitant]
     Indication: ASTHMA
     Route: 048
  30. PAXIL [Concomitant]
     Indication: DEPRESSION
     Route: 048
  31. LIPITOR [Concomitant]
     Indication: HYPERLIPIDAEMIA
     Dosage: 10-40 MG
     Route: 048
  32. ISOSORBIDE MONONITRATE [Concomitant]
     Indication: CHEST PAIN
     Dosage: 32-120 MG
     Route: 048
  33. GLUCOPHAGE [Concomitant]
     Indication: DIABETES MELLITUS
     Dosage: 500-2000 MG
     Route: 048

REACTIONS (27)
  - ABDOMINAL PAIN UPPER [None]
  - ANGINA PECTORIS [None]
  - ANGINA UNSTABLE [None]
  - ARTERIOSCLEROSIS CORONARY ARTERY [None]
  - BLOOD TRIGLYCERIDES [None]
  - BRONCHITIS [None]
  - CARBUNCLE [None]
  - CARDIAC FAILURE CONGESTIVE [None]
  - CELLULITIS STAPHYLOCOCCAL [None]
  - CHRONIC OBSTRUCTIVE PULMONARY DISEASE [None]
  - CORONARY ARTERY DISEASE [None]
  - DIABETES MELLITUS [None]
  - DIABETIC NEUROPATHY [None]
  - DYSPHAGIA [None]
  - EMPHYSEMA [None]
  - GASTRITIS [None]
  - GASTROOESOPHAGEAL REFLUX DISEASE [None]
  - HYPERGLYCAEMIA [None]
  - HYPOGLYCAEMIA [None]
  - NEURALGIA [None]
  - NEUROPATHY PERIPHERAL [None]
  - SYNCOPE [None]
  - TACHYCARDIA [None]
  - TACHYPNOEA [None]
  - TOXIC NEUROPATHY [None]
  - TYPE 1 DIABETES MELLITUS [None]
  - TYPE 2 DIABETES MELLITUS [None]
